FAERS Safety Report 20741150 (Version 2)
Quarter: 2022Q2

REPORT INFORMATION
  Report Type: Spontaneous
  Country: US (occurrence: US)
  Receive Date: 20220422
  Receipt Date: 20220512
  Transmission Date: 20220720
  Serious: Yes (Life-Threatening, Hospitalization, Other)
  Sender: FDA-Public Use
  Company Number: US-GILEAD-2022-0578645

PATIENT
  Age: 58 Year
  Sex: Male
  Weight: 72.9 kg

DRUGS (44)
  1. TECARTUS [Suspect]
     Active Substance: BREXUCABTAGENE AUTOLEUCEL
     Indication: Acute lymphocytic leukaemia
     Dosage: 1 X 10 ^8 AUTOLOGOUS ANTI CD19 CART T CELLS IN 5% DMSO
     Route: 042
     Dates: start: 20220331, end: 20220331
  2. ANAKINRA [Concomitant]
     Active Substance: ANAKINRA
     Indication: Prophylaxis
     Dosage: 100 MG, BID
     Route: 042
  3. ANAKINRA [Concomitant]
     Active Substance: ANAKINRA
     Dosage: 100 MG, Q6H
     Route: 042
     Dates: start: 20220406, end: 20220411
  4. ANAKINRA [Concomitant]
     Active Substance: ANAKINRA
     Dosage: 100 MG, Q8H
     Route: 042
     Dates: start: 20220411, end: 20220414
  5. ANAKINRA [Concomitant]
     Active Substance: ANAKINRA
     Dosage: 100 MG, Q6H
     Route: 042
     Dates: start: 20220414, end: 20220415
  6. ANAKINRA [Concomitant]
     Active Substance: ANAKINRA
     Dosage: 100 MG, BID
     Route: 042
     Dates: start: 20220415, end: 20220418
  7. KEPPRA [Concomitant]
     Active Substance: LEVETIRACETAM
     Indication: Prophylaxis
  8. HYDROCORTISONE [Concomitant]
     Active Substance: HYDROCORTISONE
     Dosage: 50 MG
     Dates: start: 20220411
  9. ACETAMINOPHEN [Concomitant]
     Active Substance: ACETAMINOPHEN
  10. SODIUM CHLORIDE [Concomitant]
     Active Substance: SODIUM CHLORIDE
  11. K PHOS NEUTRAL [Concomitant]
     Active Substance: POTASSIUM PHOSPHATE, MONOBASIC\SODIUM PHOSPHATE, DIBASIC, ANHYDROUS\SODIUM PHOSPHATE, MONOBASIC, MON
  12. ZOFRAN [Concomitant]
     Active Substance: ONDANSETRON HYDROCHLORIDE
  13. AMBIEN [Concomitant]
     Active Substance: ZOLPIDEM TARTRATE
  14. LOPERAMIDE [Concomitant]
     Active Substance: LOPERAMIDE
  15. CIPRO [Concomitant]
     Active Substance: CIPROFLOXACIN HYDROCHLORIDE
  16. ATOVAQUONE [Concomitant]
     Active Substance: ATOVAQUONE
  17. XANAX [Concomitant]
     Active Substance: ALPRAZOLAM
  18. LEVETIRACETAM [Concomitant]
     Active Substance: LEVETIRACETAM
  19. POSACONAZOLE [Concomitant]
     Active Substance: POSACONAZOLE
  20. ACYCLOVIR [Concomitant]
     Active Substance: ACYCLOVIR
  21. PANTOPRAZOLE [Concomitant]
     Active Substance: PANTOPRAZOLE
  22. INSULIN LISPRO [Concomitant]
     Active Substance: INSULIN LISPRO
  23. DEXTROSE\WATER [Concomitant]
     Active Substance: DEXTROSE\WATER
  24. VANCOMYCIN [Concomitant]
     Active Substance: VANCOMYCIN
  25. CEFEPIME [Concomitant]
     Active Substance: CEFEPIME HYDROCHLORIDE
  26. ALLOPURINOL [Concomitant]
     Active Substance: ALLOPURINOL
  27. PROCHLORPERAZINE [Concomitant]
     Active Substance: PROCHLORPERAZINE
  28. DIPHENHYDRAMINE [Concomitant]
     Active Substance: DIPHENHYDRAMINE
  29. ALTEPLASE [Concomitant]
     Active Substance: ALTEPLASE
  30. MAALOX PLUS [ALUMINIUM HYDROXIDE;MAGNESIUM HYDROXIDE;SIMETICONE] [Concomitant]
  31. TOBRAMYCIN [Concomitant]
     Active Substance: TOBRAMYCIN
  32. ZARXIO [Concomitant]
     Active Substance: FILGRASTIM-SNDZ
  33. ZOSYN [Concomitant]
     Active Substance: PIPERACILLIN SODIUM\TAZOBACTAM SODIUM
  34. MAGNESIUM SULFATE [Concomitant]
     Active Substance: MAGNESIUM SULFATE
  35. SALSALATE [Concomitant]
     Active Substance: SALSALATE
  36. POTASSIUM CHLORIDE [Concomitant]
     Active Substance: POTASSIUM CHLORIDE
  37. NEUTRA PHOS K [Concomitant]
     Active Substance: POTASSIUM PHOSPHATE, DIBASIC\POTASSIUM PHOSPHATE, MONOBASIC
  38. FILGRASTIM [Concomitant]
     Active Substance: FILGRASTIM
  39. HYDRALAZINE [Concomitant]
     Active Substance: HYDRALAZINE HYDROCHLORIDE
  40. ACRIVASTINE [Concomitant]
     Active Substance: ACRIVASTINE
  41. MELATONIN [Concomitant]
     Active Substance: MELATONIN
  42. K PHOS NEUTRAL [Concomitant]
     Active Substance: POTASSIUM PHOSPHATE, MONOBASIC\SODIUM PHOSPHATE, DIBASIC, ANHYDROUS\SODIUM PHOSPHATE, MONOBASIC, MON
  43. SODIUM PHOSPHATE [Concomitant]
     Active Substance: SODIUM PHOSPHATE
  44. CALCIUM GLUCONATE [Concomitant]
     Active Substance: CALCIUM GLUCONATE

REACTIONS (2)
  - Immune effector cell-associated neurotoxicity syndrome [Recovered/Resolved]
  - Cytokine release syndrome [Recovered/Resolved]

NARRATIVE: CASE EVENT DATE: 20220406
